FAERS Safety Report 8969826 (Version 1)
Quarter: 2012Q4

REPORT INFORMATION
  Report Type: 
  Country: US (occurrence: US)
  Receive Date: 20121218
  Receipt Date: 20121218
  Transmission Date: 20130627
  Serious: Yes (Other)
  Sender: FDA-Public Use
  Company Number: US-BRISTOL-MYERS SQUIBB COMPANY-16534661

PATIENT
  Age: 64 Year
  Sex: Male

DRUGS (3)
  1. ABILIFY [Suspect]
     Indication: DEPRESSION
     Dosage: Increased to 15 mg,several months
     Route: 048
  2. ZOLOFT [Concomitant]
     Indication: DEPRESSION
  3. GABAPENTIN [Concomitant]

REACTIONS (1)
  - Tremor [Recovering/Resolving]
